FAERS Safety Report 25810627 (Version 2)
Quarter: 2025Q4

REPORT INFORMATION
  Report Type: Spontaneous
  Country: US (occurrence: US)
  Receive Date: 20250917
  Receipt Date: 20251009
  Transmission Date: 20260117
  Serious: No
  Sender: TOLMAR
  Company Number: US-Tolmar-TLM-2025-06011

PATIENT

DRUGS (3)
  1. ELIGARD [Suspect]
     Active Substance: LEUPROLIDE ACETATE
     Indication: Prostate cancer
     Dosage: EXP DATE: 31-AUG-2026; SEP-2026; AUG-2026?SERIAL NUMBER: 7332909360741?GTIN: 00362935461500
  2. ELIGARD [Suspect]
     Active Substance: LEUPROLIDE ACETATE
     Dosage: REPLACEMENT DOSE
  3. DEVICE [Suspect]
     Active Substance: DEVICE
     Indication: Prostate cancer
     Dosage: EXP DATE: 31-AUG-2026; SEP-2026; AUG-2026?SERIAL NUMBER: 7332909360741?GTIN: 00362935461500

REACTIONS (3)
  - Wrong technique in product usage process [Unknown]
  - Intercepted product preparation error [Unknown]
  - Device leakage [Unknown]
